FAERS Safety Report 8223907-6 (Version None)
Quarter: 2012Q1

REPORT INFORMATION
  Report Type: 
  Country: None (occurrence: None)
  Receive Date: 20120312
  Receipt Date: 20120228
  Transmission Date: 20120608
  Serious: Yes (Hospitalization, Other)
  Sender: FDA-Public Use
  Company Number: 2012MA002625

PATIENT
  Age: 74 Year
  Sex: Female
  Weight: 53.5244 kg

DRUGS (17)
  1. POTASSIUM CHLORIDE [Concomitant]
  2. ZOCOR [Concomitant]
  3. MULTI-VITAMIN [Concomitant]
  4. JANUMET [Concomitant]
  5. LASIX [Concomitant]
  6. GLIPIZIDE [Concomitant]
  7. LORCET-HD [Concomitant]
  8. ALPRAZOLAM [Concomitant]
  9. LISINOPRIL [Concomitant]
  10. ASPIRIN [Concomitant]
  11. CARTIA XT [Concomitant]
  12. POTASSIUM CHLORIDE [Concomitant]
  13. DIGOXIN [Suspect]
     Indication: CARDIAC DISORDER
     Dosage: .25 MG;QD;PO
     Route: 048
     Dates: start: 20060731, end: 20090902
  14. OMEPRAZOLE [Concomitant]
  15. TRIAMCINOLONE [Concomitant]
  16. ALLEGRA [Concomitant]
  17. CEPHALEXIN [Concomitant]

REACTIONS (14)
  - VOMITING [None]
  - CEREBROVASCULAR ACCIDENT [None]
  - NAUSEA [None]
  - CARDIAC DISORDER [None]
  - DEPRESSION [None]
  - DEHYDRATION [None]
  - ARTERIOSCLEROSIS [None]
  - ATRIAL FIBRILLATION [None]
  - AMNESIA [None]
  - DIABETES MELLITUS [None]
  - TOXICITY TO VARIOUS AGENTS [None]
  - NEUROPATHY PERIPHERAL [None]
  - CEREBROVASCULAR DISORDER [None]
  - DYSPNOEA [None]
